FAERS Safety Report 20441289 (Version 1)
Quarter: 2022Q1

REPORT INFORMATION
  Report Type: Other
  Country: TR (occurrence: None)
  Receive Date: 20220208
  Receipt Date: 20220208
  Transmission Date: 20220423
  Serious: Yes (Hospitalization, Other)
  Sender: FDA-Public Use
  Company Number: TR-ROCHE-3016479

PATIENT
  Age: 24 Year
  Sex: Female

DRUGS (2)
  1. RITUXIMAB [Suspect]
     Active Substance: RITUXIMAB
     Indication: Systemic lupus erythematosus
     Route: 041
  2. VALGANCICLOVIR [Suspect]
     Active Substance: VALGANCICLOVIR
     Indication: Cytomegalovirus infection
     Dosage: PER DAY
     Route: 065

REACTIONS (6)
  - Dyspnoea [Recovered/Resolved]
  - Disease progression [Recovered/Resolved]
  - Cytomegalovirus infection [Recovered/Resolved]
  - Blister [Recovered/Resolved]
  - Off label use [Unknown]
  - Drug ineffective [Unknown]
